FAERS Safety Report 6104182-5 (Version None)
Quarter: 2009Q1

REPORT INFORMATION
  Report Type: 
  Country: None (occurrence: None)
  Receive Date: 20090305
  Receipt Date: 20090219
  Transmission Date: 20090719
  Serious: Yes (Other)
  Sender: FDA-Public Use
  Company Number: GR-GENENTECH-278264

PATIENT
  Age: 79 Year
  Sex: Male

DRUGS (1)
  1. AVASTIN [Suspect]
     Indication: MACULAR DEGENERATION
     Dosage: UNK
     Route: 031

REACTIONS (8)
  - ENDOPHTHALMITIS [None]
  - ERYTHEMA [None]
  - HYPOPYON [None]
  - IRRITABILITY [None]
  - MACULAR OEDEMA [None]
  - PAIN [None]
  - PHOTOPHOBIA [None]
  - STAPHYLOCOCCAL INFECTION [None]
